FAERS Safety Report 6752961-3 (Version None)
Quarter: 2010Q2

REPORT INFORMATION
  Report Type: 
  Country: None (occurrence: None)
  Receive Date: 20100603
  Receipt Date: 20100514
  Transmission Date: 20101027
  Serious: Yes (Hospitalization, Other)
  Sender: FDA-Public Use
  Company Number: US-BAYER-201013334NA

PATIENT
  Age: 39 Year
  Sex: Female
  Weight: 59 kg

DRUGS (11)
  1. YAZ [Suspect]
     Indication: ORAL CONTRACEPTION
     Dates: start: 20090201, end: 20091101
  2. ZOLOFT [Concomitant]
     Indication: FATIGUE
     Dosage: 50MG
     Dates: start: 20090501
  3. COUMADIN [Concomitant]
  4. AUGMENTIN '125' [Concomitant]
     Indication: FATIGUE
  5. NORCO [Concomitant]
  6. LEVAQUIN [Concomitant]
     Indication: URINARY TRACT INFECTION
     Route: 042
  7. PREDNISONE TAB [Concomitant]
  8. ANTIBIOTICS [Concomitant]
     Indication: PNEUMONIA VIRAL
  9. AMOXICILLIN AND CLAVULANATE POTASSIUM [Concomitant]
     Dosage: 875MG/125MG (10 DAY SUPPLY). IT WAS INDICATED IN PHARMACY RECORDS.
  10. PROPOXYPHENE HCL AND ACETAMINOPHEN [Concomitant]
     Dosage: 100-650 MG TAB (4 DAY SUPPLY). IT WAS INDICATED IN PHARMACY RECORDS.
  11. HYDROCODONE BITARTRATE AND ACETAMINOPHEN [Concomitant]
     Dosage: 03MAY2010 (3 DAY SUPPLY). IT WAS INDICATED IN PHARMACY RECORDS.

REACTIONS (9)
  - BACK PAIN [None]
  - CHEST PAIN [None]
  - DYSPNOEA [None]
  - FATIGUE [None]
  - FLANK PAIN [None]
  - KIDNEY INFECTION [None]
  - PNEUMONIA VIRAL [None]
  - PULMONARY EMBOLISM [None]
  - URINARY TRACT INFECTION [None]
